FAERS Safety Report 14233144 (Version 2)
Quarter: 2017Q4

REPORT INFORMATION
  Report Type: Report from Study
  Country: US (occurrence: US)
  Receive Date: 20171128
  Receipt Date: 20171221
  Transmission Date: 20180321
  Serious: Yes (Hospitalization)
  Sender: FDA-Public Use
  Company Number: US-ACTELION-A-US2017-154073

PATIENT
  Age: 53 Year
  Sex: Female
  Weight: 74.83 kg

DRUGS (3)
  1. REMODULIN [Suspect]
     Active Substance: TREPROSTINIL
     Indication: PRODUCT USED FOR UNKNOWN INDICATION
     Dosage: 30 NG/KG, PER MIN
     Route: 042
  2. ADCIRCA [Concomitant]
     Active Substance: TADALAFIL
  3. OPSUMIT [Suspect]
     Active Substance: MACITENTAN
     Indication: PULMONARY HYPERTENSION
     Dosage: 10 MG, QD
     Route: 048
     Dates: start: 201611

REACTIONS (12)
  - Catheter site pain [Unknown]
  - Headache [Recovered/Resolved]
  - Flushing [Unknown]
  - Arthralgia [Unknown]
  - Overdose [Unknown]
  - Weight increased [Not Recovered/Not Resolved]
  - Dizziness [Unknown]
  - Abdominal distension [Unknown]
  - Back pain [Unknown]
  - Catheter placement [Unknown]
  - Catheter site erythema [Unknown]
  - Catheter site swelling [Unknown]

NARRATIVE: CASE EVENT DATE: 2016
